FAERS Safety Report 14437675 (Version 1)
Quarter: 2018Q1

REPORT INFORMATION
  Report Type: Spontaneous
  Country: US (occurrence: US)
  Receive Date: 20180125
  Receipt Date: 20180125
  Transmission Date: 20180509
  Serious: No
  Sender: FDA-Public Use
  Company Number: US-ABBVIE-17K-163-1856550-00

PATIENT
  Age: 8 Year
  Sex: Male

DRUGS (7)
  1. NAPROXEN. [Concomitant]
     Active Substance: NAPROXEN
     Indication: PRODUCT USED FOR UNKNOWN INDICATION
  2. HUMIRA [Suspect]
     Active Substance: ADALIMUMAB
     Indication: ANTI-CYCLIC CITRULLINATED PEPTIDE ANTIBODY
  3. HUMIRA [Suspect]
     Active Substance: ADALIMUMAB
     Indication: RHEUMATOID FACTOR POSITIVE
  4. HUMIRA [Suspect]
     Active Substance: ADALIMUMAB
     Indication: ANTINUCLEAR ANTIBODY POSITIVE
  5. METHOTREXATE. [Concomitant]
     Active Substance: METHOTREXATE
     Indication: PRODUCT USED FOR UNKNOWN INDICATION
  6. HUMIRA [Suspect]
     Active Substance: ADALIMUMAB
     Indication: RED BLOOD CELL SEDIMENTATION RATE
  7. HUMIRA [Suspect]
     Active Substance: ADALIMUMAB
     Indication: RHEUMATOID NODULE
     Route: 058

REACTIONS (1)
  - Drug ineffective [Not Recovered/Not Resolved]
